FAERS Safety Report 8888284 (Version 1)
Quarter: 2012Q4

REPORT INFORMATION
  Report Type: 
  Country: FR (occurrence: FR)
  Receive Date: 20121106
  Receipt Date: 20121106
  Transmission Date: 20130627
  Serious: Yes (Other)
  Sender: FDA-Public Use
  Company Number: FR-PFIZER INC-2012270416

PATIENT
  Age: 8 Year
  Sex: Male

DRUGS (1)
  1. ADVIL ENFANTS ET NOURRISSONS [Suspect]
     Dosage: UNK
     Dates: end: 2012

REACTIONS (1)
  - Asthma [Unknown]
